FAERS Safety Report 5058405-4 (Version None)
Quarter: 2006Q2

REPORT INFORMATION
  Report Type: 
  Country: None (occurrence: None)
  Receive Date: 20060628
  Receipt Date: 20051103
  Transmission Date: 20061013
  Serious: Yes (Hospitalization)
  Sender: FDA-Public Use
  Company Number: 110422

PATIENT
  Age: 88 Year
  Sex: Male
  Weight: 61.2 kg

DRUGS (11)
  1. KLONOPIN [Suspect]
     Indication: ANXIETY
     Dosage: 1.5 MG DAILY ORAL
     Route: 048
     Dates: start: 19980615
  2. SERZONE [Suspect]
     Indication: DRUG USE FOR UNKNOWN INDICATION
     Dosage: 200 MG DAILY
     Dates: start: 19990415
  3. CENTRUM SILVER (ASCORBIC ACID/BIOTIN/CALCIUM NOS/CHLORIDE NOS/CHOLECAL [Suspect]
     Indication: DRUG USE FOR UNKNOWN INDICATION
     Dosage: 1 PER DAY, ORAL
     Route: 048
  4. ZOLOFT [Suspect]
     Indication: DRUG USE FOR UNKNOWN INDICATION
     Dosage: ORAL
     Route: 048
  5. NARDIL [Suspect]
     Indication: DRUG USE FOR UNKNOWN INDICATION
     Dosage: ORAL
     Route: 048
     Dates: start: 20030916
  6. GROWTH HORMONE (SOMATROPIN) [Concomitant]
  7. DHEA (PRASTERONE) [Concomitant]
  8. PREVACID [Concomitant]
  9. ROBITUSSIN (GUAIFENESIN) [Concomitant]
  10. BUSPAR [Concomitant]
  11. CIPRO [Concomitant]

REACTIONS (31)
  - ABDOMINAL PAIN [None]
  - ANXIETY [None]
  - ASTHENIA [None]
  - BALANCE DISORDER [None]
  - CLUMSINESS [None]
  - CONSTIPATION [None]
  - CYSTITIS [None]
  - DECREASED APPETITE [None]
  - DEPRESSION [None]
  - DIZZINESS [None]
  - DRUG INEFFECTIVE [None]
  - DRUG INTERACTION [None]
  - DRUG WITHDRAWAL SYNDROME [None]
  - DYSGEUSIA [None]
  - DYSPEPSIA [None]
  - EYE HAEMORRHAGE [None]
  - FLUSHING [None]
  - INSOMNIA [None]
  - JOINT STIFFNESS [None]
  - LIBIDO DECREASED [None]
  - MACULAR DEGENERATION [None]
  - MALAISE [None]
  - MUSCULAR WEAKNESS [None]
  - NAUSEA [None]
  - NERVE INJURY [None]
  - NERVOUSNESS [None]
  - PRURITUS [None]
  - SOMNOLENCE [None]
  - STOMACH DISCOMFORT [None]
  - TREMOR [None]
  - VISION BLURRED [None]
